FAERS Safety Report 23175022 (Version 3)
Quarter: 2023Q4

REPORT INFORMATION
  Report Type: Report from Study
  Country: EG (occurrence: EG)
  Receive Date: 20231112
  Receipt Date: 20231201
  Transmission Date: 20240109
  Serious: Yes (Other)
  Sender: FDA-Public Use
  Company Number: EG-SANDOZ-SDZ2023EG049005

PATIENT
  Age: 3 Year
  Sex: Male
  Weight: 10 kg

DRUGS (3)
  1. OMNITROPE [Suspect]
     Active Substance: SOMATROPIN
     Indication: Short stature
     Dosage: 0.4 MG, QD
     Route: 058
     Dates: start: 20231016, end: 20231107
  2. OMNITROPE [Suspect]
     Active Substance: SOMATROPIN
     Indication: Growth hormone deficiency
  3. UNSPECIFIED INGREDIENT [Concomitant]
     Active Substance: UNSPECIFIED INGREDIENT
     Indication: Nasopharyngitis
     Dosage: SINCE 2 WEEKS IT STARTED AND STOPPED SINCE A WEEK
     Route: 065

REACTIONS (10)
  - Nasopharyngitis [Recovered/Resolved]
  - Decreased appetite [Recovered/Resolved]
  - Somnolence [Recovered/Resolved]
  - Balance disorder [Recovered/Resolved]
  - Aggression [Not Recovered/Not Resolved]
  - Nervousness [Not Recovered/Not Resolved]
  - Multiple use of single-use product [Unknown]
  - Wrong technique in product usage process [Unknown]
  - Medication error [Not Recovered/Not Resolved]
  - Discontinued product administered [Unknown]

NARRATIVE: CASE EVENT DATE: 20231016
